FAERS Safety Report 9858889 (Version 1)
Quarter: 2014Q1

REPORT INFORMATION
  Report Type: Spontaneous
  Country: US (occurrence: US)
  Receive Date: 20140131
  Receipt Date: 20140131
  Transmission Date: 20141002
  Serious: Yes (Other)
  Sender: FDA-Public Use
  Company Number: PHHY2014US008865

PATIENT
  Age: 53 Year
  Sex: Female

DRUGS (3)
  1. SUMATRIPTAN [Suspect]
     Indication: MIGRAINE
     Dosage: 100 MG, UNK
     Route: 048
  2. SUMATRIPTAN [Suspect]
     Dosage: 50 MG, UNK
     Route: 048
  3. ALMOTRIPTAN [Concomitant]

REACTIONS (12)
  - Arteriosclerosis coronary artery [Recovering/Resolving]
  - Electrocardiogram QT prolonged [Recovering/Resolving]
  - Torsade de pointes [Recovering/Resolving]
  - Prinzmetal angina [Recovering/Resolving]
  - Hyperhidrosis [Recovering/Resolving]
  - Chest pain [Recovering/Resolving]
  - Chest discomfort [Recovering/Resolving]
  - Pain in extremity [Recovering/Resolving]
  - Ventricular tachyarrhythmia [Recovered/Resolved]
  - Ventricular tachycardia [Recovering/Resolving]
  - Myocardial ischaemia [Recovering/Resolving]
  - Migraine [Recovering/Resolving]
